FAERS Safety Report 6541883-9 (Version None)
Quarter: 2010Q1

REPORT INFORMATION
  Report Type: 
  Country: None (occurrence: None)
  Receive Date: 20100119
  Receipt Date: 20100111
  Transmission Date: 20100710
  Serious: Yes (Other)
  Sender: FDA-Public Use
  Company Number: US-JNJFOC-20100103727

PATIENT
  Age: 20 Year
  Sex: Female

DRUGS (3)
  1. REMICADE [Suspect]
     Indication: RHEUMATOID ARTHRITIS
     Dosage: ^FOR THE PAST 2 YEARS^
     Route: 042
  2. BIRTH CONTROL PILLS [Concomitant]
     Indication: CONTRACEPTION
  3. METHOTREXATE [Concomitant]
     Indication: RHEUMATOID ARTHRITIS

REACTIONS (1)
  - WEIGHT INCREASED [None]
